FAERS Safety Report 7204973-3 (Version None)
Quarter: 2010Q4

REPORT INFORMATION
  Report Type: 
  Country: None (occurrence: None)
  Receive Date: 20101230
  Receipt Date: 20101221
  Transmission Date: 20110411
  Serious: Yes (Death)
  Sender: FDA-Public Use
  Company Number: FR-GENENTECH-311696

PATIENT
  Sex: Female
  Weight: 84 kg

DRUGS (2)
  1. RITUXIMAB [Suspect]
     Indication: CHRONIC LYMPHOCYTIC LEUKAEMIA
     Dosage: 940 MG, 1/MONTH
     Route: 042
     Dates: start: 20100623, end: 20101115
  2. BENDAMUSTINE [Suspect]
     Indication: CHRONIC LYMPHOCYTIC LEUKAEMIA
     Dosage: 132.5 MG, 1/MONTH
     Route: 042
     Dates: start: 20100623, end: 20101116

REACTIONS (1)
  - DEATH [None]
